FAERS Safety Report 16785566 (Version 1)
Quarter: 2019Q3

REPORT INFORMATION
  Report Type: Spontaneous
  Country: TW (occurrence: TW)
  Receive Date: 20190909
  Receipt Date: 20190909
  Transmission Date: 20191005
  Serious: Yes (Death, Hospitalization)
  Sender: FDA-Public Use
  Company Number: TW-PFIZER INC-2019385031

PATIENT
  Age: 48 Year
  Sex: Female

DRUGS (16)
  1. TIGECYCLINE. [Concomitant]
     Active Substance: TIGECYCLINE
     Indication: AEROMONAS INFECTION
     Dosage: 50 MG, 2X/DAY (EVERY12 H (Q12H)) (INTRAVENOUSLY DRIP (IVD))
     Route: 041
  2. LINEZOLID. [Suspect]
     Active Substance: LINEZOLID
     Indication: TRICHOSPORON INFECTION
     Dosage: UNK
     Route: 042
  3. COLISTIN [Suspect]
     Active Substance: COLISTIN
     Indication: TRICHOSPORON INFECTION
     Dosage: UNK
     Route: 042
  4. CEFTAZIDIME. [Suspect]
     Active Substance: CEFTAZIDIME
     Indication: ENTEROCOCCAL INFECTION
     Dosage: 2 G, 1X/DAY (IVD)
     Route: 041
  5. CEFTAZIDIME. [Suspect]
     Active Substance: CEFTAZIDIME
     Indication: STENOTROPHOMONAS INFECTION
  6. TIGECYCLINE. [Concomitant]
     Active Substance: TIGECYCLINE
     Indication: ENTEROCOCCAL INFECTION
     Dosage: 200 MG, 2X/DAY (STAT)
  7. VORICONAZOLE. [Suspect]
     Active Substance: VORICONAZOLE
     Indication: TRICHOSPORON INFECTION
     Dosage: UNK
     Route: 042
  8. CEFTAZIDIME. [Suspect]
     Active Substance: CEFTAZIDIME
     Indication: TRICHOSPORON INFECTION
  9. ANIDULAFUNGIN [Concomitant]
     Active Substance: ANIDULAFUNGIN
     Dosage: 100 MG, DAILY (IVD) (Q24H)
     Route: 041
  10. TIGECYCLINE. [Concomitant]
     Active Substance: TIGECYCLINE
     Indication: STENOTROPHOMONAS INFECTION
  11. SULBACTAM [Suspect]
     Active Substance: SULBACTAM
     Indication: TRICHOSPORON INFECTION
     Dosage: UNK
     Route: 042
  12. CEFTAZIDIME. [Suspect]
     Active Substance: CEFTAZIDIME
     Indication: AEROMONAS INFECTION
     Dosage: UNK
     Route: 042
  13. CEFTAZIDIME. [Suspect]
     Active Substance: CEFTAZIDIME
     Indication: ENTEROCOCCAL INFECTION
  14. VANCOMYCIN [Concomitant]
     Active Substance: VANCOMYCIN
     Dosage: UNK
  15. ANIDULAFUNGIN [Concomitant]
     Active Substance: ANIDULAFUNGIN
     Indication: CANDIDA INFECTION
     Dosage: 200 MG, AS NEEDED (STAT) (IVD)
     Route: 041
  16. TIGECYCLINE. [Concomitant]
     Active Substance: TIGECYCLINE
     Indication: ENTEROCOCCAL INFECTION

REACTIONS (1)
  - Drug ineffective [Fatal]
